FAERS Safety Report 16775041 (Version 1)
Quarter: 2019Q3

REPORT INFORMATION
  Report Type: Spontaneous
  Country: US (occurrence: US)
  Receive Date: 20190716
  Receipt Date: 20190716
  Transmission Date: 20191005
  Serious: No
  Sender: FDA-Public Use
  Company Number: None

PATIENT
  Age: 60 Year
  Sex: Female

DRUGS (1)
  1. IMATINIB  400MG TAB (X30) [Suspect]
     Active Substance: IMATINIB
     Dates: start: 201809

REACTIONS (5)
  - Nausea [None]
  - Pollakiuria [None]
  - Anxiety [None]
  - Fluid retention [None]
  - Alopecia [None]

NARRATIVE: CASE EVENT DATE: 20190716
